FAERS Safety Report 8963606 (Version 2)
Quarter: 2013Q1

REPORT INFORMATION
  Report Type: Spontaneous
  Country: US (occurrence: US)
  Receive Date: 20121213
  Receipt Date: 20130108
  Transmission Date: 20140127
  Serious: Yes (Other)
  Sender: FDA-Public Use
  Company Number: CHPA2012US024681

PATIENT
  Age: 57 Year
  Sex: Female

DRUGS (2)
  1. BENEFIBER STICK PACKS [Suspect]
     Indication: BOWEL MOVEMENT IRREGULARITY
     Dosage: 1 STICK PACK DAILY
     Route: 048
     Dates: start: 2009
  2. MAGNESIUM [Concomitant]

REACTIONS (2)
  - Diverticulum [Unknown]
  - Off label use [Unknown]
